FAERS Safety Report 6686956-5 (Version None)
Quarter: 2010Q2

REPORT INFORMATION
  Report Type: 
  Country: None (occurrence: None)
  Receive Date: 20100419
  Receipt Date: 20100409
  Transmission Date: 20101027
  Serious: Yes (Hospitalization, Other)
  Sender: FDA-Public Use
  Company Number: PHHY2010JP16812

PATIENT
  Age: 2 Year
  Sex: Female

DRUGS (4)
  1. CYCLOSPORINE [Suspect]
     Indication: EPSTEIN-BARR VIRUS INFECTION
     Dosage: UNK
     Route: 048
     Dates: start: 20040301
  2. NEORAL [Suspect]
  3. SANDIMMUNE [Suspect]
  4. PREDNISOLONE [Suspect]
     Indication: EPSTEIN-BARR VIRUS INFECTION
     Dosage: UNK
     Dates: start: 20040301

REACTIONS (7)
  - BONE LESION [None]
  - EPSTEIN-BARR VIRUS INFECTION [None]
  - EPSTEIN-BARR VIRUS TEST POSITIVE [None]
  - EXOPHTHALMOS [None]
  - LANGERHANS' CELL HISTIOCYTOSIS [None]
  - OSTEOLYSIS [None]
  - SWELLING [None]
